FAERS Safety Report 12705238 (Version 1)
Quarter: 2016Q3

REPORT INFORMATION
  Report Type: Spontaneous
  Country: US (occurrence: None)
  Receive Date: 20160831
  Receipt Date: 20160831
  Transmission Date: 20161109
  Serious: No
  Sender: FDA-Public Use
  Company Number: None

PATIENT
  Age: 7 Year
  Sex: Male

DRUGS (11)
  1. NAPROXEN SUS. 125/ML [Suspect]
     Active Substance: NAPROXEN
     Indication: ARTHROPATHY
     Route: 048
     Dates: start: 20151008, end: 20160210
  2. PROVENTIL [Concomitant]
     Active Substance: ALBUTEROL
  3. NAPROXEN. [Concomitant]
     Active Substance: NAPROXEN
  4. SINGULAIR [Concomitant]
     Active Substance: MONTELUKAST SODIUM
  5. ZERTECT [Concomitant]
  6. MULTIVITAMIN [Concomitant]
     Active Substance: VITAMINS
  7. OMGEA 3 [Concomitant]
  8. VITAMIN D [Concomitant]
     Active Substance: CHOLECALCIFEROL
  9. NAPROXEN SUS. 125/ML [Suspect]
     Active Substance: NAPROXEN
     Indication: ARTHRALGIA
     Route: 048
     Dates: start: 20151008, end: 20160210
  10. QVAR [Concomitant]
     Active Substance: BECLOMETHASONE DIPROPIONATE
  11. ALBUTERAL [Concomitant]
     Active Substance: ALBUTEROL

REACTIONS (3)
  - Joint swelling [None]
  - Arthralgia [None]
  - Condition aggravated [None]

NARRATIVE: CASE EVENT DATE: 20151112
